FAERS Safety Report 17675469 (Version 1)
Quarter: 2020Q2

REPORT INFORMATION
  Report Type: Spontaneous
  Country: US (occurrence: US)
  Receive Date: 20200415
  Receipt Date: 20200415
  Transmission Date: 20200714
  Serious: No
  Sender: FDA-Public Use
  Company Number: None

PATIENT
  Age: 63 Year
  Sex: Female

DRUGS (1)
  1. GLATIRAMER ACETATE (12X1ML) 40MG/ML MYLAN [Suspect]
     Active Substance: GLATIRAMER ACETATE
     Route: 058
     Dates: start: 201711

REACTIONS (4)
  - Injection site swelling [None]
  - Injection site rash [None]
  - Rash erythematous [None]
  - Injection site vesicles [None]

NARRATIVE: CASE EVENT DATE: 20200408
